FAERS Safety Report 8610690-5 (Version None)
Quarter: 2012Q3

REPORT INFORMATION
  Report Type: 
  Country: None (occurrence: None)
  Receive Date: 20120822
  Receipt Date: 20120814
  Transmission Date: 20120928
  Serious: Yes (Hospitalization)
  Sender: FDA-Public Use
  Company Number: FR-JNJFOC-20120807530

PATIENT
  Sex: Male

DRUGS (4)
  1. HALOPERIDOL LACTATE [Suspect]
     Indication: AGITATION
     Route: 030
     Dates: start: 20120712, end: 20120712
  2. TERCIAN [Suspect]
     Indication: PSYCHOTIC DISORDER
     Route: 030
     Dates: start: 20120711, end: 20120711
  3. NOZINAN [Suspect]
     Indication: PSYCHOTIC DISORDER
     Route: 042
     Dates: start: 20120712, end: 20120712
  4. HALDOL [Suspect]
     Indication: PSYCHOTIC DISORDER
     Route: 030
     Dates: start: 20120712, end: 20120712

REACTIONS (2)
  - BLOOD CREATINE PHOSPHOKINASE INCREASED [None]
  - PYREXIA [None]
